FAERS Safety Report 5511502-9 (Version None)
Quarter: 2007Q4

REPORT INFORMATION
  Report Type: 
  Country: None (occurrence: None)
  Receive Date: 20071109
  Receipt Date: 20071102
  Transmission Date: 20080405
  Serious: Yes (Other)
  Sender: FDA-Public Use
  Company Number: A0693661A

PATIENT
  Sex: Male

DRUGS (2)
  1. LAMICTAL [Suspect]
     Indication: DRUG USE FOR UNKNOWN INDICATION
     Dosage: 300MG AT NIGHT
     Route: 048
  2. UNKNOWN [Concomitant]

REACTIONS (5)
  - ADVERSE EVENT [None]
  - CHOKING [None]
  - DYSPHAGIA [None]
  - FOREIGN BODY TRAUMA [None]
  - PHARMACEUTICAL PRODUCT COMPLAINT [None]
